FAERS Safety Report 7368286-1 (Version None)
Quarter: 2011Q1

REPORT INFORMATION
  Report Type: 
  Country: None (occurrence: None)
  Receive Date: 20110323
  Receipt Date: 20110309
  Transmission Date: 20110831
  Serious: Yes (Hospitalization, Other)
  Sender: FDA-Public Use
  Company Number: IT-CELGENEUS-083-50794-11022852

PATIENT
  Sex: Male

DRUGS (5)
  1. ANTRA [Concomitant]
     Route: 065
  2. ZYLORIC [Concomitant]
     Route: 065
  3. VIDAZA [Suspect]
     Dosage: 125 MILLIGRAM
     Route: 058
     Dates: start: 20110125, end: 20110131
  4. ZEFFIX [Concomitant]
     Route: 065
  5. NORVASC [Concomitant]
     Route: 065

REACTIONS (9)
  - HAEMATURIA [None]
  - RASH ERYTHEMATOUS [None]
  - ATRIAL FIBRILLATION [None]
  - OEDEMA PERIPHERAL [None]
  - BLOOD CREATINE PHOSPHOKINASE INCREASED [None]
  - HYPERPYREXIA [None]
  - PANCYTOPENIA [None]
  - MUSCULOSKELETAL PAIN [None]
  - MYOGLOBINURIA [None]
